FAERS Safety Report 6983831-3 (Version None)
Quarter: 2010Q3

REPORT INFORMATION
  Report Type: 
  Country: None (occurrence: None)
  Receive Date: 20100914
  Receipt Date: 20090313
  Transmission Date: 20110219
  Serious: No
  Sender: FDA-Public Use
  Company Number: US-WYE-H08614309

PATIENT
  Age: 62 Year
  Sex: Female
  Weight: 106.69 kg

DRUGS (1)
  1. ADVIL LIQUI-GELS [Suspect]
     Indication: ANALGESIC THERAPY
     Dosage: 2 TABLETS AS NEEDED
     Route: 048
     Dates: end: 20081101

REACTIONS (2)
  - GLOSSODYNIA [None]
  - OROPHARYNGEAL PAIN [None]
